FAERS Safety Report 4827091-8 (Version None)
Quarter: 2005Q4

REPORT INFORMATION
  Report Type: 
  Country: None (occurrence: None)
  Receive Date: 20051114
  Receipt Date: 20051107
  Transmission Date: 20060501
  Serious: Yes (Other)
  Sender: FDA-Public Use
  Company Number: US-GLAXOSMITHKLINE-A0581274A

PATIENT
  Age: 65 Year

DRUGS (1)
  1. ADVAIR DISKUS 100/50 [Suspect]
     Indication: HYPERSENSITIVITY
     Route: 055

REACTIONS (3)
  - INTERVERTEBRAL DISC DEGENERATION [None]
  - OSTEOPOROSIS [None]
  - PAIN [None]
